FAERS Safety Report 5356597-0 (Version None)
Quarter: 2007Q2

REPORT INFORMATION
  Report Type: 
  Country: None (occurrence: None)
  Receive Date: 20070614
  Receipt Date: 20070604
  Transmission Date: 20071010
  Serious: Yes (Other)
  Sender: FDA-Public Use
  Company Number: PHMT2007CA01341

PATIENT
  Age: 54 Year
  Sex: Female

DRUGS (3)
  1. SIMULECT [Suspect]
     Indication: RENAL TRANSPLANT
     Dosage: 20 MG, ONCE/SINGLE
     Dates: start: 20070517
  2. SULFASALAZINE [Concomitant]
  3. NEUROMUSCULAR BLOCKER [Concomitant]

REACTIONS (2)
  - HYPOTENSION [None]
  - RESPIRATORY DISTRESS [None]
